FAERS Safety Report 6818034-6 (Version None)
Quarter: 2010Q3

REPORT INFORMATION
  Report Type: 
  Country: None (occurrence: None)
  Receive Date: 20100706
  Receipt Date: 20100701
  Transmission Date: 20110219
  Serious: Yes (Hospitalization)
  Sender: FDA-Public Use
  Company Number: A0723726A

PATIENT
  Age: 56 Year
  Sex: Male

DRUGS (1)
  1. AVANDIA [Suspect]
     Indication: TYPE 2 DIABETES MELLITUS
     Dosage: 4MG PER DAY
     Route: 048
     Dates: start: 20040413, end: 20060516

REACTIONS (7)
  - ACUTE MYOCARDIAL INFARCTION [None]
  - ACUTE PRERENAL FAILURE [None]
  - ATRIAL FIBRILLATION [None]
  - CARDIAC FAILURE CHRONIC [None]
  - CORONARY ARTERY DISEASE [None]
  - FLUID OVERLOAD [None]
  - RESPIRATORY FAILURE [None]
